FAERS Safety Report 6735152-1 (Version None)
Quarter: 2010Q2

REPORT INFORMATION
  Report Type: 
  Country: None (occurrence: None)
  Receive Date: 20100520
  Receipt Date: 20100520
  Transmission Date: 20101027
  Serious: Yes (Disabling)
  Sender: FDA-Public Use
  Company Number: None

PATIENT
  Age: 54 Year
  Sex: Female
  Weight: 87.9978 kg

DRUGS (11)
  1. CIMZIA [Suspect]
     Indication: RHEUMATOID ARTHRITIS
     Dosage: 200 MG TWICE A WEEK INJ
     Dates: start: 20091015
  2. CIMZIA [Suspect]
     Indication: RHEUMATOID ARTHRITIS
     Dosage: 200 MG TWICE A WEEK INJ
     Dates: start: 20091030
  3. TOPROL-XL [Concomitant]
  4. LIPITOR [Concomitant]
  5. VESICARE [Concomitant]
  6. PREDNISONE TAB [Concomitant]
  7. NORCO [Concomitant]
  8. AVIENZA [Concomitant]
  9. PULMICORT [Concomitant]
  10. ALBUTEROL [Concomitant]
  11. SOMA [Concomitant]

REACTIONS (3)
  - BLISTER [None]
  - ERYTHEMA [None]
  - RHEUMATOID ARTHRITIS [None]
